FAERS Safety Report 26106893 (Version 1)
Quarter: 2025Q4

REPORT INFORMATION
  Report Type: Spontaneous
  Country: JP (occurrence: JP)
  Receive Date: 20251201
  Receipt Date: 20251201
  Transmission Date: 20260118
  Serious: Yes (Other)
  Sender: STRIDES
  Company Number: JP-STRIDES ARCOLAB LIMITED-2025SP014687

PATIENT
  Age: 75 Year
  Sex: Female

DRUGS (14)
  1. PREDNISOLONE [Interacting]
     Active Substance: PREDNISOLONE
     Indication: Hodgkin^s disease
     Dosage: 5 MILLIGRAM, QD
     Route: 065
     Dates: start: 2022
  2. PREDNISOLONE [Interacting]
     Active Substance: PREDNISOLONE
     Indication: Immune-mediated gastritis
     Dosage: 35 MILLIGRAM, QD
     Route: 065
     Dates: start: 2023
  3. PREDNISOLONE [Interacting]
     Active Substance: PREDNISOLONE
     Dosage: 5 MILLIGRAM, QD
     Route: 065
     Dates: start: 2023
  4. AXITINIB [Interacting]
     Active Substance: AXITINIB
     Indication: Renal cancer
     Dosage: 10 MILLIGRAM, QD
     Route: 065
     Dates: start: 202211
  5. AXITINIB [Interacting]
     Active Substance: AXITINIB
     Dosage: 5 MILLIGRAM, QD
     Route: 065
     Dates: start: 2023, end: 20230725
  6. VONOPRAZAN FUMARATE [Interacting]
     Active Substance: VONOPRAZAN FUMARATE
     Indication: Antacid therapy
     Dosage: 10 MILLIGRAM
     Route: 065
     Dates: start: 2022
  7. FLUCONAZOLE [Interacting]
     Active Substance: FLUCONAZOLE
     Indication: Antifungal prophylaxis
     Dosage: 100 MILLIGRAM
     Route: 065
     Dates: start: 2022
  8. PEMBROLIZUMAB [Concomitant]
     Active Substance: PEMBROLIZUMAB
     Indication: Renal cancer
     Dosage: 200 MILLIGRAM, EVERY 3 WEEKS
     Route: 065
     Dates: start: 202211, end: 202304
  9. PEMBROLIZUMAB [Concomitant]
     Active Substance: PEMBROLIZUMAB
     Dosage: 400 MILLIGRAM, ONCE 6 WEEKS
     Route: 065
     Dates: start: 202304
  10. CABOZANTINIB [Concomitant]
     Active Substance: CABOZANTINIB
     Indication: Renal cancer metastatic
     Dosage: 40 MILLIGRAM, QD
     Route: 065
     Dates: start: 2023
  11. VINBLASTINE [Concomitant]
     Active Substance: VINBLASTINE
     Indication: Hodgkin^s disease
     Dosage: UNK
     Route: 065
  12. DACARBAZINE [Concomitant]
     Active Substance: DACARBAZINE
     Indication: Hodgkin^s disease
     Dosage: UNK
     Route: 065
  13. BRENTUXIMAB VEDOTIN [Concomitant]
     Active Substance: BRENTUXIMAB VEDOTIN
     Indication: Hodgkin^s disease
     Dosage: UNK
     Route: 065
  14. ADRIAMYCIN [Concomitant]
     Active Substance: DOXORUBICIN HYDROCHLORIDE
     Indication: Hodgkin^s disease
     Dosage: UNK
     Route: 065

REACTIONS (2)
  - Thrombocytopenia [Recovered/Resolved]
  - Drug interaction [Unknown]
